FAERS Safety Report 5086314-3 (Version None)
Quarter: 2006Q3

REPORT INFORMATION
  Report Type: 
  Country: None (occurrence: None)
  Receive Date: 20060703
  Receipt Date: 20060314
  Transmission Date: 20061208
  Serious: No
  Sender: FDA-Public Use
  Company Number: 2006S1002221

PATIENT
  Age: 46 Year
  Sex: Male

DRUGS (11)
  1. CLOZAPINE [Suspect]
     Indication: PSYCHOTIC DISORDER
     Dosage: 200 MG; HS; ORAL
     Route: 048
     Dates: start: 20050701
  2. VENLAFAXINE HCL [Concomitant]
  3. ASPIRIN [Concomitant]
  4. DIPHENHYDRAMINE HCL [Concomitant]
  5. GEMFIBROZIL [Concomitant]
  6. METFORMIN HCL [Concomitant]
  7. RISPERIDONE [Concomitant]
  8. FERROUS GLUCONATE [Concomitant]
  9. TRAZODONE HCL [Concomitant]
  10. LEVOTHYROXINE SODIUM [Concomitant]
  11. RAMIPRIL [Concomitant]

REACTIONS (1)
  - GRANULOCYTOPENIA [None]
